FAERS Safety Report 19144672 (Version 1)
Quarter: 2021Q2

REPORT INFORMATION
  Report Type: Spontaneous
  Country: US (occurrence: US)
  Receive Date: 20210416
  Receipt Date: 20210416
  Transmission Date: 20210717
  Serious: Yes (Hospitalization)
  Sender: FDA-Public Use
  Company Number: None

PATIENT
  Age: 43 Year
  Sex: Male
  Weight: 105 kg

DRUGS (2)
  1. MELOXICAM (MELOXICAM 7.5MG TAB) [Suspect]
     Active Substance: MELOXICAM
     Indication: PAIN
     Route: 048
     Dates: start: 20210324, end: 20210329
  2. RIVAROXABAN (RIVAROXABAN 10MG TAB ) [Suspect]
     Active Substance: RIVAROXABAN
     Indication: KNEE ARTHROPLASTY
     Route: 048
     Dates: start: 20210324, end: 20210329

REACTIONS (2)
  - Acute kidney injury [None]
  - Gastric haemorrhage [None]

NARRATIVE: CASE EVENT DATE: 20210329
